FAERS Safety Report 13167040 (Version 1)
Quarter: 2017Q1

REPORT INFORMATION
  Report Type: Spontaneous
  Country: US (occurrence: US)
  Receive Date: 20170130
  Receipt Date: 20170130
  Transmission Date: 20170428
  Serious: Yes (Disabling)
  Sender: FDA-Public Use
  Company Number: None

PATIENT
  Age: 56 Year
  Sex: Female
  Weight: 54 kg

DRUGS (12)
  1. WHOLE FOOD MULTI VITAMIN [Concomitant]
  2. L LYSINE [Concomitant]
  3. OMEGA 3 [Concomitant]
     Active Substance: OMEGA-3 FATTY ACIDS
  4. ESSENTIAL OILS. [Concomitant]
     Active Substance: ESSENTIAL OILS
  5. TUMERIC [Concomitant]
     Active Substance: TURMERIC
  6. QUERCETIN [Concomitant]
     Active Substance: QUERCETIN
  7. ORGANIC HERBAL TEAS [Concomitant]
  8. CIPROFLOXACIN. [Suspect]
     Active Substance: CIPROFLOXACIN
     Indication: SINUSITIS
     Dates: start: 20070223, end: 20070225
  9. TART CHERRY JUICE AND NATURAL REMEDIES FOR PAIN SUCH AS CANNABIS [Concomitant]
  10. CALCIUM/MAGNESIUM [Concomitant]
  11. TOPRICIN [Concomitant]
     Active Substance: HOMEOPATHICS
  12. CANNABIS [Concomitant]
     Active Substance: CANNABIS SATIVA SUBSP. INDICA TOP

REACTIONS (49)
  - Insomnia [None]
  - Disorientation [None]
  - Blindness [None]
  - Fatigue [None]
  - Neuralgia [None]
  - Intervertebral disc degeneration [None]
  - Panic attack [None]
  - Depersonalisation/derealisation disorder [None]
  - Alopecia [None]
  - Abdominal pain [None]
  - Nerve injury [None]
  - Fall [None]
  - Deafness [None]
  - Muscle spasms [None]
  - Vitreous floaters [None]
  - Muscle spasticity [None]
  - Periarthritis [None]
  - Concussion [None]
  - Chills [None]
  - Liver injury [None]
  - Pain in extremity [None]
  - Pain [None]
  - Arthralgia [None]
  - Hypothyroidism [None]
  - Heart rate irregular [None]
  - Ataxia [None]
  - Balance disorder [None]
  - Tendon pain [None]
  - Paraesthesia [None]
  - Amnesia [None]
  - Plantar fasciitis [None]
  - Asthenia [None]
  - Temperature intolerance [None]
  - Vision blurred [None]
  - Clonus [None]
  - Hypoglycaemia [None]
  - Rotator cuff syndrome [None]
  - Feeling abnormal [None]
  - Irritable bowel syndrome [None]
  - Dyspnoea [None]
  - Epicondylitis [None]
  - Hip fracture [None]
  - Rhabdomyolysis [None]
  - Tremor [None]
  - Collagen disorder [None]
  - Depression [None]
  - Anxiety [None]
  - Diarrhoea [None]
  - Upper motor neurone lesion [None]

NARRATIVE: CASE EVENT DATE: 20070223
